FAERS Safety Report 5402095-5 (Version None)
Quarter: 2007Q3

REPORT INFORMATION
  Report Type: 
  Country: None (occurrence: None)
  Receive Date: 20070801
  Receipt Date: 20070720
  Transmission Date: 20080115
  Serious: Yes (Hospitalization)
  Sender: FDA-Public Use
  Company Number: US-JNJFOC-20070705185

PATIENT
  Sex: Male
  Weight: 165.56 kg

DRUGS (4)
  1. REMICADE [Suspect]
     Route: 042
  2. REMICADE [Suspect]
     Indication: PSORIASIS
     Route: 042
  3. CARDIAZEM [Concomitant]
  4. AMBIEN [Concomitant]

REACTIONS (2)
  - ABSCESS [None]
  - DIVERTICULITIS [None]
